FAERS Safety Report 21417698 (Version 2)
Quarter: 2022Q4

REPORT INFORMATION
  Report Type: Spontaneous
  Country: US (occurrence: US)
  Receive Date: 20221006
  Receipt Date: 20221010
  Transmission Date: 20230113
  Serious: No
  Sender: FDA-Public Use
  Company Number: US-SANOFI-01299895

PATIENT
  Age: 69 Year
  Sex: Male

DRUGS (2)
  1. DUPIXENT [Suspect]
     Active Substance: DUPILUMAB
     Indication: Dermatitis atopic
     Dosage: UNK
     Dates: start: 202202, end: 2022
  2. DUPIXENT [Suspect]
     Active Substance: DUPILUMAB
     Dosage: 200 MG
     Dates: start: 2022

REACTIONS (7)
  - Pain in extremity [Unknown]
  - Lethargy [Unknown]
  - Insomnia [Unknown]
  - Fatigue [Unknown]
  - Post procedural contusion [Unknown]
  - Skin abrasion [Unknown]
  - Shoulder operation [Unknown]

NARRATIVE: CASE EVENT DATE: 20220101
